FAERS Safety Report 10569032 (Version 1)
Quarter: 2014Q4

REPORT INFORMATION
  Report Type: Spontaneous
  Country: JP (occurrence: JP)
  Receive Date: 20141106
  Receipt Date: 20141106
  Transmission Date: 20150529
  Serious: Yes (Death, Other)
  Sender: FDA-Public Use
  Company Number: PHHY2014JP142848

PATIENT
  Sex: Female

DRUGS (4)
  1. CARBOPLATIN. [Suspect]
     Active Substance: CARBOPLATIN
     Indication: CERVIX CARCINOMA STAGE IV
     Dosage: CUMULATIVE DOSE: 5900 MG/BODY
     Route: 065
  2. CAMPTOTHECIN [Suspect]
     Active Substance: CAMPTOTHECIN
     Indication: CERVIX CARCINOMA STAGE IV
     Route: 065
  3. PACLITAXEL. [Suspect]
     Active Substance: PACLITAXEL
     Indication: CERVIX CARCINOMA STAGE IV
     Dosage: CUMULATIVE DOSE: 2400MG/BODY
     Route: 065
  4. CISPLATIN. [Suspect]
     Active Substance: CISPLATIN
     Indication: CERVIX CARCINOMA STAGE IV
     Dosage: CUMULATIVE DOSE: 963MG/BODY
     Route: 065

REACTIONS (2)
  - Acute myeloid leukaemia [Fatal]
  - Bone marrow failure [Unknown]
